FAERS Safety Report 18511154 (Version 1)
Quarter: 2020Q4

REPORT INFORMATION
  Report Type: Spontaneous
  Country: US (occurrence: US)
  Receive Date: 20201117
  Receipt Date: 20201117
  Transmission Date: 20210114
  Serious: No
  Sender: FDA-Public Use
  Company Number: US-009507513-2010USA008959

PATIENT
  Age: 78 Year
  Sex: Male

DRUGS (1)
  1. REBETOL [Suspect]
     Active Substance: RIBAVIRIN
     Indication: PNEUMONIA RESPIRATORY SYNCYTIAL VIRAL
     Dosage: 8 MG/KG, THREE TIMES DAILY (TID)
     Route: 048
     Dates: start: 2019, end: 2019

REACTIONS (1)
  - Off label use [Unknown]

NARRATIVE: CASE EVENT DATE: 2019
